FAERS Safety Report 7731272-3 (Version None)
Quarter: 2011Q3

REPORT INFORMATION
  Report Type: 
  Country: None (occurrence: None)
  Receive Date: 20110906
  Receipt Date: 20110901
  Transmission Date: 20111222
  Serious: Yes (Hospitalization, Congenital Anomaly, Other)
  Sender: FDA-Public Use
  Company Number: US-PFIZER INC-2010092602

PATIENT
  Sex: Male
  Weight: 1.74 kg

DRUGS (3)
  1. MINOCYCLINE [Concomitant]
     Dosage: 50MG AND 100MG, TWICE DAILY
     Dates: start: 20010301
  2. ZOLOFT [Suspect]
     Indication: DEPRESSION
     Dosage: 50MG, UNK
     Route: 064
  3. PRENATAL VITAMINS [Concomitant]
     Route: 064

REACTIONS (12)
  - INFANTILE APNOEIC ATTACK [None]
  - FOETAL GROWTH RESTRICTION [None]
  - NEONATAL RESPIRATORY DISTRESS SYNDROME [None]
  - FEEDING DISORDER NEONATAL [None]
  - CONGENITAL SMALL INTESTINAL ATRESIA [None]
  - INTESTINAL MALROTATION [None]
  - GASTROOESOPHAGEAL REFLUX DISEASE [None]
  - GASTROSCHISIS [None]
  - ANAEMIA NEONATAL [None]
  - MATERNAL EXPOSURE DURING PREGNANCY [None]
  - HEAD DEFORMITY [None]
  - JAUNDICE NEONATAL [None]
